FAERS Safety Report 22367204 (Version 1)
Quarter: 2023Q2

REPORT INFORMATION
  Report Type: Spontaneous
  Country: US (occurrence: None)
  Receive Date: 20230524
  Receipt Date: 20230524
  Transmission Date: 20230722
  Serious: Yes (Hospitalization)
  Sender: FDA-Public Use
  Company Number: None

PATIENT
  Age: 79 Year
  Sex: Male

DRUGS (1)
  1. XELODA [Suspect]
     Active Substance: CAPECITABINE
     Dosage: OTHER QUANTITY : 1500MG IN AM/1000 ;?FREQUENCY : TWICE A DAY;?

REACTIONS (6)
  - Dehydration [None]
  - Nausea [None]
  - Diarrhoea [None]
  - Blood magnesium decreased [None]
  - Blood potassium decreased [None]
  - Infusion related reaction [None]

NARRATIVE: CASE EVENT DATE: 20230521
